FAERS Safety Report 25479832 (Version 1)
Quarter: 2025Q2

REPORT INFORMATION
  Report Type: Spontaneous
  Country: FI (occurrence: FI)
  Receive Date: 20250625
  Receipt Date: 20250625
  Transmission Date: 20250717
  Serious: Yes (Death, Other)
  Sender: AMGEN
  Company Number: FI-AMGEN-FINSP2025122122

PATIENT

DRUGS (1)
  1. XGEVA [Suspect]
     Active Substance: DENOSUMAB
     Indication: Plasma cell myeloma
     Route: 065

REACTIONS (5)
  - Death [Fatal]
  - Plasma cell myeloma [Fatal]
  - Osteoporotic fracture [Unknown]
  - Pathological fracture [Unknown]
  - Traumatic fracture [Unknown]
